FAERS Safety Report 7603549-3 (Version None)
Quarter: 2011Q3

REPORT INFORMATION
  Report Type: 
  Country: None (occurrence: None)
  Receive Date: 20110701
  Receipt Date: 20110617
  Transmission Date: 20111222
  Serious: Yes (Other)
  Sender: FDA-Public Use
  Company Number: AUR-APL-2011-03646

PATIENT
  Age: 71 Year
  Sex: Male

DRUGS (3)
  1. ACETAMINOPHEN [Concomitant]
  2. MELOXICAM [Suspect]
     Indication: ARTHRALGIA
     Dosage: 15 MG (15 MG,1 IN 1 D),ORAL
     Route: 048
     Dates: start: 20110411, end: 20110509
  3. SIMVASTATIN [Concomitant]

REACTIONS (3)
  - MELAENA [None]
  - DUODENITIS [None]
  - VOMITING [None]
